FAERS Safety Report 10346855 (Version 1)
Quarter: 2014Q3

REPORT INFORMATION
  Report Type: Spontaneous
  Country: US (occurrence: None)
  Receive Date: 20140725
  Receipt Date: 20140725
  Transmission Date: 20150326
  Serious: Yes (Life-Threatening)
  Sender: FDA-Public Use
  Company Number: None

PATIENT
  Age: 28 Year
  Sex: Female
  Weight: 54 kg

DRUGS (4)
  1. VANCOMYCIN [Concomitant]
     Active Substance: VANCOMYCIN
  2. MERCAQPTOPURINE [Concomitant]
  3. REMICADE [Suspect]
     Active Substance: INFLIXIMAB
     Indication: COLITIS ULCERATIVE
     Route: 042
     Dates: start: 20140718
  4. SOLUMEROL [Concomitant]

REACTIONS (4)
  - Renal failure acute [None]
  - Thrombotic thrombocytopenic purpura [None]
  - Haemolytic anaemia [None]
  - Thrombocytopenia [None]

NARRATIVE: CASE EVENT DATE: 20140720
